FAERS Safety Report 9930627 (Version 1)
Quarter: 2014Q1

REPORT INFORMATION
  Report Type: Spontaneous
  Country: US (occurrence: US)
  Receive Date: 20140227
  Receipt Date: 20140227
  Transmission Date: 20141002
  Serious: No
  Sender: FDA-Public Use
  Company Number: US-AMGEN-USASP2013090582

PATIENT
  Age: 45 Year
  Sex: Male
  Weight: 111.11 kg

DRUGS (3)
  1. ENBREL [Suspect]
     Indication: PRODUCT USED FOR UNKNOWN INDICATION
     Dosage: 50 MG, ONCE WEEKLY
     Route: 058
  2. VITAMIN D3 [Concomitant]
     Dosage: 10000 UNIT, UNK
  3. MELOXICAM [Concomitant]
     Dosage: 7.5 MG, UNK

REACTIONS (1)
  - Sinusitis [Unknown]
